FAERS Safety Report 17677253 (Version 1)
Quarter: 2020Q2

REPORT INFORMATION
  Report Type: Spontaneous
  Country: US (occurrence: US)
  Receive Date: 20200415
  Receipt Date: 20200415
  Transmission Date: 20200714
  Serious: Yes (Life-Threatening, Hospitalization)
  Sender: FDA-Public Use
  Company Number: None

PATIENT
  Age: 64 Year
  Sex: Male

DRUGS (2)
  1. CIPROFLOXACIN(CIPROFLOXACIN10MG/ML INJ IV) [Suspect]
     Active Substance: CIPROFLOXACIN
     Indication: ARTHRITIS INFECTIVE
     Dosage: ?          OTHER ROUTE:IV?
     Dates: start: 20190215, end: 20190216
  2. METRONIDAZOLE (METRONIDAZOLE HCL 5MG/VIL INJ) [Suspect]
     Active Substance: METRONIDAZOLE HYDROCHLORIDE
     Indication: ARTHRITIS INFECTIVE
     Dates: start: 20190215, end: 20190216

REACTIONS (6)
  - Angioedema [None]
  - Renal replacement therapy [None]
  - Respiratory distress [None]
  - Anaphylactic reaction [None]
  - Drug hypersensitivity [None]
  - Pruritus [None]

NARRATIVE: CASE EVENT DATE: 20190216
